FAERS Safety Report 5781252-2 (Version None)
Quarter: 2008Q2

REPORT INFORMATION
  Report Type: 
  Country: None (occurrence: None)
  Receive Date: 20080618
  Receipt Date: 20080529
  Transmission Date: 20081010
  Serious: Yes (Other)
  Sender: FDA-Public Use
  Company Number: ABLAC-08-0197

PATIENT
  Age: 62 Year
  Sex: Female
  Weight: 68.4932 kg

DRUGS (8)
  1. ABRAXANE [Suspect]
     Indication: BREAST CANCER METASTATIC
     Dosage: 429 MG (260 MG/M2, 1 DOSE Q 3 WEEKS), INTRAVENOUS
     Route: 042
  2. AVASTIN [Concomitant]
  3. ZOMETA [Concomitant]
  4. NEXIUM [Concomitant]
  5. NEURONTIN [Concomitant]
  6. ELAVIL [Concomitant]
  7. HYZAAR [Concomitant]
  8. ATENOLOL [Concomitant]

REACTIONS (4)
  - CONJUNCTIVITIS [None]
  - KERATITIS [None]
  - MYDRIASIS [None]
  - PAIN [None]
